FAERS Safety Report 4379751-3 (Version None)
Quarter: 2004Q2

REPORT INFORMATION
  Report Type: 
  Country: None (occurrence: None)
  Receive Date: 20040617
  Receipt Date: 20040608
  Transmission Date: 20050107
  Serious: Yes (Hospitalization)
  Sender: FDA-Public Use
  Company Number: ES-GLAXOSMITHKLINE-B0335696A

PATIENT
  Age: 83 Year
  Sex: Female

DRUGS (3)
  1. SEROXAT [Suspect]
     Indication: DEPRESSION
     Dosage: 20MG PER DAY
     Route: 048
     Dates: start: 20040101, end: 20040320
  2. CEFUROXIME AXETIL [Suspect]
     Indication: RESPIRATORY DISORDER
     Dosage: 1G PER DAY
     Route: 048
     Dates: start: 20040320, end: 20040327
  3. ORFIDAL [Concomitant]

REACTIONS (1)
  - HYPONATRAEMIA [None]
